FAERS Safety Report 6926447-7 (Version None)
Quarter: 2010Q3

REPORT INFORMATION
  Report Type: 
  Country: None (occurrence: None)
  Receive Date: 20100816
  Receipt Date: 20100720
  Transmission Date: 20110219
  Serious: Yes (Disabling)
  Sender: FDA-Public Use
  Company Number: BR-BAYER-201017154LA

PATIENT
  Age: 49 Year
  Sex: Female

DRUGS (4)
  1. BETAFERON [Suspect]
     Indication: MULTIPLE SCLEROSIS
     Dosage: BETAJECT
     Route: 058
     Dates: start: 20100401
  2. ETNA [Concomitant]
     Indication: ANXIETY
     Dosage: 1 TABLET
     Route: 048
     Dates: start: 20100501
  3. BETASERC [Concomitant]
     Indication: BALANCE DISORDER
     Dosage: 1 TABLET
     Route: 048
     Dates: start: 20100401
  4. CAPTOPRIL [Concomitant]
     Indication: HYPERTENSION
     Dosage: TOTAL DAILY DOSE: 50 MG
     Route: 048
     Dates: start: 20080101

REACTIONS (2)
  - PAIN IN EXTREMITY [None]
  - RASH MACULAR [None]
